FAERS Safety Report 12359264 (Version 1)
Quarter: 2016Q2

REPORT INFORMATION
  Report Type: Spontaneous
  Country: US (occurrence: US)
  Receive Date: 20160512
  Receipt Date: 20160512
  Transmission Date: 20160815
  Serious: Yes (Death, Hospitalization)
  Sender: FDA-Public Use
  Company Number: US-ENDO PHARMACEUTICALS INC.-2016-000834

PATIENT
  Age: 62 Year
  Sex: Male
  Weight: 79.45 kg

DRUGS (2)
  1. DEPO TESTOSTERONE [Suspect]
     Active Substance: TESTOSTERONE
     Indication: ANDROGEN REPLACEMENT THERAPY
     Route: 065
     Dates: start: 200603, end: 20140228
  2. DELATESTRYL [Suspect]
     Active Substance: TESTOSTERONE ENANTHATE
     Indication: ANDROGEN REPLACEMENT THERAPY
     Route: 065
     Dates: start: 200501, end: 201312

REACTIONS (8)
  - Cardiac failure congestive [Fatal]
  - Respiratory failure [Unknown]
  - Coronary artery disease [Fatal]
  - Myocardial infarction [Fatal]
  - Ischaemic cardiomyopathy [Fatal]
  - Cardiogenic shock [Unknown]
  - Septic shock [Recovered/Resolved]
  - Ventricular arrhythmia [Fatal]

NARRATIVE: CASE EVENT DATE: 2009
